FAERS Safety Report 8693999 (Version 2)
Quarter: 2013Q3

REPORT INFORMATION
  Report Type: Report from Study
  Country: MX (occurrence: MX)
  Receive Date: 20120731
  Receipt Date: 20130728
  Transmission Date: 20140515
  Serious: Yes (Disabling)
  Sender: FDA-Public Use
  Company Number: PHHY2012MX065203

PATIENT
  Age: 73 Year
  Sex: Female

DRUGS (1)
  1. ACLASTA [Suspect]
     Dosage: 5MG/100 ML, EACH YEAR
     Route: 042
     Dates: start: 201012, end: 201112

REACTIONS (1)
  - Movement disorder [Not Recovered/Not Resolved]
